FAERS Safety Report 6905444-1 (Version None)
Quarter: 2010Q3

REPORT INFORMATION
  Report Type: 
  Country: None (occurrence: None)
  Receive Date: 20100804
  Receipt Date: 20100721
  Transmission Date: 20110219
  Serious: Yes (Other)
  Sender: FDA-Public Use
  Company Number: PHHY2010US48624

PATIENT
  Sex: Female
  Weight: 63.039 kg

DRUGS (4)
  1. ZOMETA [Suspect]
     Indication: BREAST CANCER METASTATIC
     Dosage: 4 MG, EVERY 4 WEEK
     Route: 042
     Dates: start: 20061025, end: 20081113
  2. CARBOPLATIN [Concomitant]
  3. TAXOTERE [Concomitant]
  4. HERCEPTIN [Concomitant]

REACTIONS (3)
  - ABSCESS JAW [None]
  - DENTAL CARE [None]
  - OSTEONECROSIS OF JAW [None]
